FAERS Safety Report 8430003-1 (Version None)
Quarter: 2012Q2

REPORT INFORMATION
  Report Type: 
  Country: None (occurrence: None)
  Receive Date: 20120612
  Receipt Date: 20120601
  Transmission Date: 20120825
  Serious: Yes (Hospitalization)
  Sender: FDA-Public Use
  Company Number: DE-ROCHE-1063616

PATIENT
  Age: 73 Year
  Sex: Female
  Weight: 75 kg

DRUGS (6)
  1. METHOTREXATE [Suspect]
     Indication: RHEUMATOID ARTHRITIS
     Route: 048
  2. ACTEMRA [Suspect]
     Dosage: THERAPY DISCONTINUED
     Route: 042
     Dates: start: 20111011
  3. ACTEMRA [Suspect]
     Dosage: THERAPY DISCONTINUED
     Route: 042
     Dates: start: 20111215
  4. ACTEMRA [Suspect]
     Indication: RHEUMATOID ARTHRITIS
     Route: 042
     Dates: start: 20110620
  5. ACTEMRA [Suspect]
     Route: 042
     Dates: start: 20120112
  6. ACTEMRA [Suspect]
     Dosage: THERAPY DISCONTINUED
     Route: 042
     Dates: start: 20111117

REACTIONS (2)
  - NASOPHARYNGITIS [None]
  - EOSINOPHILIC PNEUMONIA [None]
